FAERS Safety Report 6709426-4 (Version None)
Quarter: 2010Q2

REPORT INFORMATION
  Report Type: 
  Country: None (occurrence: None)
  Receive Date: 20100429
  Receipt Date: 20100413
  Transmission Date: 20101027
  Serious: Yes (Other)
  Sender: FDA-Public Use
  Company Number: ACO_00735_2010

PATIENT
  Age: 46 Year
  Sex: Female

DRUGS (3)
  1. SIRDALUD (SIRDALUD - TIZANIDINE HYDROCHLORIDE) (NOT SPECIFIED) [Suspect]
     Indication: DRUG USE FOR UNKNOWN INDICATION
     Dosage: DF
  2. TRENTAL [Concomitant]
  3. NEUROMULTIVIT [Concomitant]

REACTIONS (3)
  - BLOOD TEST ABNORMAL [None]
  - CONTUSION [None]
  - PLATELET DISORDER [None]
